FAERS Safety Report 11165281 (Version 2)
Quarter: 2015Q3

REPORT INFORMATION
  Report Type: Report from Study
  Country: IL (occurrence: IL)
  Receive Date: 20150604
  Receipt Date: 20150709
  Transmission Date: 20151125
  Serious: Yes (Hospitalization, Other)
  Sender: FDA-Public Use
  Company Number: PHHY2015IL065813

PATIENT
  Sex: Male
  Weight: 70 kg

DRUGS (1)
  1. EXJADE [Suspect]
     Active Substance: DEFERASIROX
     Indication: THALASSAEMIA BETA
     Dosage: 2000 MG, QD (1 PER DAY)
     Route: 048
     Dates: start: 20060601

REACTIONS (3)
  - Blood albumin decreased [Unknown]
  - Nephrotic syndrome [Unknown]
  - IgA nephropathy [Unknown]
